FAERS Safety Report 20687570 (Version 1)
Quarter: 2022Q2

REPORT INFORMATION
  Report Type: Spontaneous
  Country: US (occurrence: US)
  Receive Date: 20220408
  Receipt Date: 20220408
  Transmission Date: 20220721
  Serious: No
  Sender: FDA-Public Use
  Company Number: US-JNJFOC-20220364800

PATIENT
  Age: 26 Year
  Sex: Female

DRUGS (6)
  1. ZYRTEC [Suspect]
     Active Substance: CETIRIZINE HYDROCHLORIDE
     Indication: Rash
     Route: 065
  2. BENADRYL [Suspect]
     Active Substance: DIPHENHYDRAMINE HYDROCHLORIDE
     Indication: Rash
     Route: 065
  3. COVID-19 VACCINE [Concomitant]
     Indication: Immunisation
     Route: 065
     Dates: start: 202103
  4. COVID-19 VACCINE [Concomitant]
     Route: 065
     Dates: start: 202104
  5. COVID-19 VACCINE [Concomitant]
     Route: 065
     Dates: start: 202110
  6. CLARITIN [Concomitant]
     Active Substance: LORATADINE
     Indication: Rash
     Route: 065

REACTIONS (1)
  - Product use in unapproved indication [Unknown]
